FAERS Safety Report 18397786 (Version 1)
Quarter: 2020Q4

REPORT INFORMATION
  Report Type: Spontaneous
  Country: US (occurrence: US)
  Receive Date: 20201019
  Receipt Date: 20201019
  Transmission Date: 20210114
  Serious: No
  Sender: FDA-Public Use
  Company Number: US-JNJFOC-20201010445

PATIENT
  Sex: Female

DRUGS (1)
  1. REMICADE [Suspect]
     Active Substance: INFLIXIMAB
     Indication: PRODUCT USED FOR UNKNOWN INDICATION
     Route: 042

REACTIONS (11)
  - Eye pain [Unknown]
  - Headache [Unknown]
  - Iritis [Unknown]
  - Off label use [Unknown]
  - Tinnitus [Unknown]
  - Dizziness [Unknown]
  - Taste disorder [Unknown]
  - Presyncope [Unknown]
  - Inappropriate schedule of product administration [Unknown]
  - Pruritus [Unknown]
  - Adverse event [Unknown]
